FAERS Safety Report 12990910 (Version 1)
Quarter: 2016Q4

REPORT INFORMATION
  Report Type: Spontaneous
  Country: US (occurrence: US)
  Receive Date: 20161130
  Receipt Date: 20161130
  Transmission Date: 20170207
  Serious: No
  Sender: FDA-Public Use
  Company Number: None

PATIENT
  Age: 63 Year
  Sex: Female
  Weight: 60.75 kg

DRUGS (18)
  1. BUTRANS [Suspect]
     Active Substance: BUPRENORPHINE
     Indication: PAIN
     Dosage: ?          OTHER FREQUENCY:Q 7 DAYS;?
     Route: 062
     Dates: start: 20160831, end: 20161129
  2. SINGULAIR [Concomitant]
     Active Substance: MONTELUKAST SODIUM
  3. LOSARTAN. [Concomitant]
     Active Substance: LOSARTAN
  4. OMEPRAZOLE. [Concomitant]
     Active Substance: OMEPRAZOLE
  5. RITALIN [Concomitant]
     Active Substance: METHYLPHENIDATE HYDROCHLORIDE
  6. ALEVE [Concomitant]
     Active Substance: NAPROXEN SODIUM
  7. VITAMIN D3 [Concomitant]
     Active Substance: CHOLECALCIFEROL
  8. OTC FOR BOWEL CARE [Concomitant]
  9. ESTRACE [Concomitant]
     Active Substance: ESTRADIOL
  10. VESICARE [Concomitant]
     Active Substance: SOLIFENACIN SUCCINATE
  11. TRAMADOL. [Concomitant]
     Active Substance: TRAMADOL
  12. VOLTAREN [Concomitant]
     Active Substance: DICLOFENAC SODIUM
  13. CITALOPRAM [Concomitant]
     Active Substance: CITALOPRAM HYDROBROMIDE
  14. STRONTIUM BOOST [Concomitant]
  15. FISH OIL [Concomitant]
     Active Substance: FISH OIL
  16. CA [Concomitant]
  17. MELATONIN [Concomitant]
     Active Substance: MELATONIN
  18. LACTULOSE. [Concomitant]
     Active Substance: LACTULOSE

REACTIONS (4)
  - Pruritus [None]
  - Skin reaction [None]
  - Wheezing [None]
  - Erythema [None]

NARRATIVE: CASE EVENT DATE: 20160831
